FAERS Safety Report 10420553 (Version 1)
Quarter: 2014Q3

REPORT INFORMATION
  Report Type: Spontaneous
  Country: US (occurrence: None)
  Receive Date: 20140702
  Receipt Date: 20140702
  Transmission Date: 20150326
  Serious: Yes (Other)
  Sender: FDA-Public Use
  Company Number: PHEH2013US017287

PATIENT
  Sex: Male

DRUGS (2)
  1. DEPAKOTE [Concomitant]
     Active Substance: DIVALPROEX SODIUM
     Dosage: UNK UKN, BID , ORAL
  2. FANAPT [Suspect]
     Active Substance: ILOPERIDONE
     Dosage: UNK, UKN, BID, ORAL
     Route: 048
     Dates: start: 201308

REACTIONS (1)
  - Convulsion [None]

NARRATIVE: CASE EVENT DATE: 201308
